FAERS Safety Report 15809618 (Version 1)
Quarter: 2019Q1

REPORT INFORMATION
  Report Type: Spontaneous
  Country: US (occurrence: US)
  Receive Date: 20190111
  Receipt Date: 20190111
  Transmission Date: 20190417
  Serious: No
  Sender: FDA-Public Use
  Company Number: US-ROCHE-2035167

PATIENT
  Age: 63 Year
  Sex: Female

DRUGS (1)
  1. RITUXAN [Suspect]
     Active Substance: RITUXIMAB
     Indication: RHEUMATOID ARTHRITIS
     Dosage: ONGOING:UNKNOWN
     Route: 042
     Dates: start: 201405

REACTIONS (4)
  - Fungal infection [Recovered/Resolved]
  - Vulvovaginal inflammation [Unknown]
  - Sinusitis [Unknown]
  - Vaginal ulceration [Unknown]

NARRATIVE: CASE EVENT DATE: 2017
